FAERS Safety Report 5979792-6 (Version None)
Quarter: 2008Q4

REPORT INFORMATION
  Report Type: 
  Country: None (occurrence: None)
  Receive Date: 20081204
  Receipt Date: 20080219
  Transmission Date: 20090506
  Serious: No
  Sender: FDA-Public Use
  Company Number: US-AMGEN-KDL266239

PATIENT
  Sex: Female

DRUGS (3)
  1. ENBREL [Suspect]
     Indication: DRUG USE FOR UNKNOWN INDICATION
     Route: 058
     Dates: start: 20080115
  2. LEFLUNOMIDE [Concomitant]
     Dates: start: 20060101
  3. METHOTREXATE [Concomitant]
     Dates: start: 20070101

REACTIONS (1)
  - INJECTION SITE IRRITATION [None]
